FAERS Safety Report 6938506-3 (Version None)
Quarter: 2010Q3

REPORT INFORMATION
  Report Type: 
  Country: None (occurrence: None)
  Receive Date: 20100824
  Receipt Date: 20100816
  Transmission Date: 20110219
  Serious: Yes (Hospitalization, Other)
  Sender: FDA-Public Use
  Company Number: US-ASTRAZENECA-2010SE03661

PATIENT
  Age: 12488 Day
  Sex: Male
  Weight: 49.4 kg

DRUGS (14)
  1. SEROQUEL [Suspect]
     Indication: AGGRESSION
     Dosage: VARIED DOSE FROM 100-600MG
     Route: 048
     Dates: start: 20060927
  2. SEROQUEL [Suspect]
     Dosage: 200 MG 8AM, 400 MG 8 PM
     Route: 048
  3. SEROQUEL [Suspect]
     Route: 048
  4. SEROQUEL [Suspect]
     Route: 050
  5. DETROL LA [Concomitant]
  6. DETROL LA [Concomitant]
     Dosage: 1MG EACH MORNING, 2MG EACH EVENING
     Route: 050
  7. KEPPRA [Concomitant]
     Indication: CONVULSION
  8. KEPPRA [Concomitant]
     Route: 050
     Dates: start: 20080212, end: 20091210
  9. PREVACID [Concomitant]
  10. MILK OF MAGNESIA TAB [Concomitant]
  11. MEPHYTON [Concomitant]
     Route: 050
  12. ALBUTEROL [Concomitant]
     Route: 050
  13. ASCORBIC ACID [Concomitant]
     Route: 050
  14. CELEXA [Concomitant]
     Indication: DEPRESSION
     Route: 050
     Dates: start: 20090508, end: 20091210

REACTIONS (28)
  - BACK PAIN [None]
  - BACTERIAL TEST POSITIVE [None]
  - BLEEDING VARICOSE VEIN [None]
  - CHEST PAIN [None]
  - CHROMATURIA [None]
  - CONTUSION [None]
  - ECCHYMOSIS [None]
  - EPISTAXIS [None]
  - EXTERNAL EAR DISORDER [None]
  - HAEMATOMA [None]
  - HAEMATURIA [None]
  - HAEMORRHAGE [None]
  - HAEMORRHAGIC DISORDER [None]
  - HIATUS HERNIA [None]
  - LIMB INJURY [None]
  - LOCALISED INFECTION [None]
  - OEDEMA [None]
  - OEDEMA PERIPHERAL [None]
  - OESOPHAGITIS [None]
  - PETECHIAE [None]
  - PLATELET FUNCTION TEST ABNORMAL [None]
  - PYREXIA [None]
  - SCROTAL HAEMATOMA [None]
  - SPLENOMEGALY [None]
  - SWELLING FACE [None]
  - URINARY TRACT INFECTION [None]
  - WOUND HAEMORRHAGE [None]
  - WOUND SECRETION [None]
